FAERS Safety Report 16444034 (Version 1)
Quarter: 2019Q2

REPORT INFORMATION
  Report Type: Spontaneous
  Country: PT (occurrence: PT)
  Receive Date: 20190618
  Receipt Date: 20190618
  Transmission Date: 20190711
  Serious: Yes (Other)
  Sender: FDA-Public Use
  Company Number: PT-ACCORD-133388

PATIENT
  Age: 38 Year
  Sex: Female

DRUGS (6)
  1. DOCETAXEL. [Suspect]
     Active Substance: DOCETAXEL
     Indication: INFLAMMATORY CARCINOMA OF THE BREAST
     Dates: start: 201611
  2. TRASTUZUMAB. [Suspect]
     Active Substance: TRASTUZUMAB
     Indication: INFLAMMATORY CARCINOMA OF THE BREAST
     Dates: start: 201611
  3. LAPATINIB/LAPATINIB DITOSYLATE [Suspect]
     Active Substance: LAPATINIB
     Indication: INFLAMMATORY CARCINOMA OF THE BREAST
  4. CAPECITABINE. [Suspect]
     Active Substance: CAPECITABINE
     Indication: INFLAMMATORY CARCINOMA OF THE BREAST
  5. CISPLATIN. [Suspect]
     Active Substance: CISPLATIN
     Indication: PERICARDIAL EFFUSION
     Dosage: 3 CONSECUTIVE ADMINISTRATIONS
     Route: 032
  6. PERTUZUMAB. [Suspect]
     Active Substance: PERTUZUMAB
     Indication: INFLAMMATORY CARCINOMA OF THE BREAST
     Dates: start: 201611

REACTIONS (7)
  - Off label use [Unknown]
  - Dyspnoea at rest [Unknown]
  - Hypoxia [Unknown]
  - Drug intolerance [Unknown]
  - Pericardial effusion [Recovering/Resolving]
  - Orthopnoea [Unknown]
  - Ascites [Unknown]

NARRATIVE: CASE EVENT DATE: 201707
